FAERS Safety Report 15597170 (Version 9)
Quarter: 2022Q3

REPORT INFORMATION
  Report Type: Report from Study
  Country: TR (occurrence: None)
  Receive Date: 20181108
  Receipt Date: 20220718
  Transmission Date: 20221026
  Serious: Yes (Hospitalization)
  Sender: FDA-Public Use
  Company Number: TR-ROCHE-2167534

PATIENT
  Age: 72 Year
  Sex: Female
  Weight: 50.7 kg

DRUGS (56)
  1. ATEZOLIZUMAB [Suspect]
     Active Substance: ATEZOLIZUMAB
     Indication: Ovarian cancer
     Dosage: MOST RECENT DOSE ON 10/JUL/2018?MOST RECENT DOSE : 16/OCT/2018
     Route: 042
     Dates: start: 20180515
  2. BEVACIZUMAB [Suspect]
     Active Substance: BEVACIZUMAB
     Indication: Ovarian cancer
     Dosage: MOST RECENT DOSE (750 MG) ON 10/JUL/2018
     Route: 042
     Dates: start: 20180619
  3. PACLITAXEL [Suspect]
     Active Substance: PACLITAXEL
     Indication: Ovarian cancer
     Dosage: MOST RECENT DOSE (160 MG) ON 10/JUL/2018?DATE OF MOST RECENT DOSE OF PACLITAXEL PRIOR TO AE ONSET: 1
     Route: 042
     Dates: start: 20180515
  4. CARBOPLATIN [Suspect]
     Active Substance: CARBOPLATIN
     Indication: Ovarian cancer
     Dosage: AT A DOSE TO ACHIEVE A TARGET AREA UNDER THE CURVE (AUC) OF 6 MILLIGRAMS PER MILLILITER*MINUTE ?MOST
     Route: 042
     Dates: start: 20180515
  5. ENOXAPARIN SODIUM [Concomitant]
     Active Substance: ENOXAPARIN SODIUM
     Indication: Embolism
     Dates: start: 20180814
  6. ENOXAPARIN SODIUM [Concomitant]
     Active Substance: ENOXAPARIN SODIUM
     Indication: Tonsillitis
     Dates: start: 20180806, end: 20180811
  7. ENOXAPARIN SODIUM [Concomitant]
     Active Substance: ENOXAPARIN SODIUM
     Dates: start: 20181025, end: 20181106
  8. ENOXAPARIN SODIUM [Concomitant]
     Active Substance: ENOXAPARIN SODIUM
     Dates: start: 20180731, end: 20180803
  9. CHOLECALCIFEROL [Concomitant]
     Active Substance: CHOLECALCIFEROL
     Dates: start: 20180814
  10. ESOMEPRAZOLE [Concomitant]
     Active Substance: ESOMEPRAZOLE
     Dates: start: 20180814
  11. DEXAMETHASONE [Concomitant]
     Active Substance: DEXAMETHASONE
     Route: 042
     Dates: start: 20180814, end: 20180814
  12. DEXAMETHASONE [Concomitant]
     Active Substance: DEXAMETHASONE
     Route: 042
     Dates: start: 20180710, end: 20180710
  13. DEXAMETHASONE [Concomitant]
     Active Substance: DEXAMETHASONE
     Route: 042
     Dates: start: 20180906, end: 20180906
  14. DEXAMETHASONE [Concomitant]
     Active Substance: DEXAMETHASONE
     Route: 042
     Dates: start: 20180925, end: 20180925
  15. RANITIDINE HYDROCHLORIDE [Concomitant]
     Active Substance: RANITIDINE HYDROCHLORIDE
     Dates: start: 20180814, end: 20180814
  16. RANITIDINE HYDROCHLORIDE [Concomitant]
     Active Substance: RANITIDINE HYDROCHLORIDE
     Dates: start: 20180710, end: 20180710
  17. RANITIDINE HYDROCHLORIDE [Concomitant]
     Active Substance: RANITIDINE HYDROCHLORIDE
     Dates: start: 20180906, end: 20180906
  18. RANITIDINE HYDROCHLORIDE [Concomitant]
     Active Substance: RANITIDINE HYDROCHLORIDE
     Dates: start: 20180925, end: 20180925
  19. PALONOSETRON HYDROCHLORIDE [Concomitant]
     Active Substance: PALONOSETRON HYDROCHLORIDE
     Dates: start: 20180814, end: 20180814
  20. PALONOSETRON HYDROCHLORIDE [Concomitant]
     Active Substance: PALONOSETRON HYDROCHLORIDE
     Dates: start: 20180710, end: 20180710
  21. PALONOSETRON HYDROCHLORIDE [Concomitant]
     Active Substance: PALONOSETRON HYDROCHLORIDE
     Dates: start: 20180925, end: 20180925
  22. PALONOSETRON HYDROCHLORIDE [Concomitant]
     Active Substance: PALONOSETRON HYDROCHLORIDE
     Dates: start: 20180906, end: 20180906
  23. MEGESTROL ACETATE [Concomitant]
     Active Substance: MEGESTROL ACETATE
     Indication: Hypomagnesaemia
     Dates: start: 20180706
  24. MEGESTROL ACETATE [Concomitant]
     Active Substance: MEGESTROL ACETATE
     Indication: Decreased appetite
     Route: 048
     Dates: start: 20180906, end: 20181016
  25. PHENIRAMINE [Concomitant]
     Active Substance: PHENIRAMINE
     Dates: start: 20180710, end: 20180710
  26. PHENIRAMINE [Concomitant]
     Active Substance: PHENIRAMINE
     Dates: start: 20180814, end: 20180814
  27. PHENIRAMINE [Concomitant]
     Active Substance: PHENIRAMINE
     Dates: start: 20180925, end: 20180925
  28. DEXAMETHASONE [Concomitant]
     Active Substance: DEXAMETHASONE
     Route: 042
     Dates: start: 20180710, end: 20180710
  29. DEXAMETHASONE [Concomitant]
     Active Substance: DEXAMETHASONE
     Route: 042
     Dates: start: 20180814, end: 20180814
  30. METOCLOPRAMIDE HYDROCHLORIDE [Concomitant]
     Active Substance: METOCLOPRAMIDE HYDROCHLORIDE
     Indication: Vomiting
     Dates: start: 20180713, end: 20180717
  31. METOCLOPRAMIDE HYDROCHLORIDE [Concomitant]
     Active Substance: METOCLOPRAMIDE HYDROCHLORIDE
     Indication: Small intestinal obstruction
     Dates: start: 20180806, end: 20180811
  32. BENZYDAMINE HCL [Concomitant]
     Indication: Tonsillitis
     Dates: start: 20180731, end: 20180803
  33. BENZYDAMINE HCL [Concomitant]
     Dates: start: 20180806, end: 20180811
  34. SERTRALINE [Concomitant]
     Active Substance: SERTRALINE HYDROCHLORIDE
     Indication: Anxiety
     Dates: start: 20180806
  35. UREA [Concomitant]
     Active Substance: UREA
     Indication: Dry skin
     Dates: start: 20180906
  36. ACETAMINOPHEN [Concomitant]
     Active Substance: ACETAMINOPHEN
     Indication: Pain
     Dates: start: 20180713, end: 20180717
  37. ACETAMINOPHEN [Concomitant]
     Active Substance: ACETAMINOPHEN
     Indication: Small intestinal obstruction
     Dates: start: 20180806, end: 20180811
  38. ACETAMINOPHEN [Concomitant]
     Active Substance: ACETAMINOPHEN
     Indication: Upper respiratory tract infection
     Dates: start: 20181025, end: 20181106
  39. ACETAMINOPHEN [Concomitant]
     Active Substance: ACETAMINOPHEN
     Dates: start: 20180831, end: 20180902
  40. PANTOPRAZOLE SODIUM [Concomitant]
     Active Substance: PANTOPRAZOLE SODIUM
     Indication: Small intestinal obstruction
     Dates: start: 20180713, end: 20180717
  41. PANTOPRAZOLE SODIUM [Concomitant]
     Active Substance: PANTOPRAZOLE SODIUM
     Dates: start: 20180731, end: 20180803
  42. PANTOPRAZOLE SODIUM [Concomitant]
     Active Substance: PANTOPRAZOLE SODIUM
     Dates: start: 20180806, end: 20180811
  43. PANTOPRAZOLE SODIUM [Concomitant]
     Active Substance: PANTOPRAZOLE SODIUM
     Dates: start: 20181025, end: 20181106
  44. PANTOPRAZOLE SODIUM [Concomitant]
     Active Substance: PANTOPRAZOLE SODIUM
     Dates: start: 20180831, end: 20180902
  45. PIPERACILLIN SODIUM\TAZOBACTAM SODIUM [Concomitant]
     Active Substance: PIPERACILLIN SODIUM\TAZOBACTAM SODIUM
     Indication: Small intestinal obstruction
     Dates: start: 20180806, end: 20180811
  46. PIPERACILLIN SODIUM\TAZOBACTAM SODIUM [Concomitant]
     Active Substance: PIPERACILLIN SODIUM\TAZOBACTAM SODIUM
     Indication: Tonsillitis
     Dates: start: 20180731, end: 20180803
  47. PIPERACILLIN SODIUM\TAZOBACTAM SODIUM [Concomitant]
     Active Substance: PIPERACILLIN SODIUM\TAZOBACTAM SODIUM
     Indication: Upper respiratory tract infection
     Dates: start: 20180831, end: 20180902
  48. FILGRASTIM [Concomitant]
     Active Substance: FILGRASTIM
     Indication: Prophylaxis
     Route: 058
     Dates: start: 20180814, end: 20180814
  49. FENIRAMIN [Concomitant]
     Indication: Upper respiratory tract infection
     Dates: start: 20180814, end: 20180814
  50. FENIRAMIN [Concomitant]
     Dates: start: 20180710, end: 20180710
  51. FENIRAMIN [Concomitant]
     Dates: start: 20180906, end: 20180906
  52. FENIRAMIN [Concomitant]
     Dates: start: 20180925, end: 20180925
  53. FENIRAMIN [Concomitant]
     Route: 042
     Dates: start: 20180831, end: 20180902
  54. CYANOCOBALAMIN\PYRIDOXINE HYDROCHLORIDE\RIBOFLAVIN\SODIUM PANTOTHENATE [Concomitant]
     Active Substance: CYANOCOBALAMIN\PYRIDOXINE HYDROCHLORIDE\RIBOFLAVIN\SODIUM PANTOTHENATE\THIAMINE HYDROCHLORIDE\VITAMI
     Indication: Vomiting
     Dates: start: 20180713, end: 20180717
  55. FLUCONAZOLE [Concomitant]
     Active Substance: FLUCONAZOLE
     Indication: Upper respiratory tract infection
     Dates: start: 20180831, end: 20180902
  56. NYSTATIN [Concomitant]
     Active Substance: NYSTATIN
     Indication: Upper respiratory tract infection
     Dates: start: 20180831, end: 20180902

REACTIONS (1)
  - Small intestinal obstruction [Recovered/Resolved]

NARRATIVE: CASE EVENT DATE: 20180806
